FAERS Safety Report 23514824 (Version 1)
Quarter: 2024Q1

REPORT INFORMATION
  Report Type: Spontaneous
  Country: US (occurrence: US)
  Receive Date: 20240212
  Receipt Date: 20240212
  Transmission Date: 20240410
  Serious: No
  Sender: FDA-Public Use
  Company Number: US-ELI_LILLY_AND_COMPANY-US202402005447

PATIENT
  Sex: Female

DRUGS (1)
  1. TALTZ [Suspect]
     Active Substance: IXEKIZUMAB
     Indication: Arthritis
     Dosage: 160 MG, OTHER ( LOADING DOSE)
     Route: 065
     Dates: start: 20240202

REACTIONS (2)
  - Arthritis [Unknown]
  - Sleep disorder due to a general medical condition [Unknown]
